FAERS Safety Report 16189400 (Version 1)
Quarter: 2019Q2

REPORT INFORMATION
  Report Type: Spontaneous
  Country: US (occurrence: US)
  Receive Date: 20190411
  Receipt Date: 20190411
  Transmission Date: 20190711
  Serious: No
  Sender: FDA-Public Use
  Company Number: None

PATIENT
  Age: 78 Year
  Sex: Female
  Weight: 53 kg

DRUGS (7)
  1. IBRANCE [Suspect]
     Active Substance: PALBOCICLIB
     Route: 048
     Dates: start: 20160303, end: 20190411
  2. LOSARTAN 50 MG [Concomitant]
     Active Substance: LOSARTAN
  3. XARELTO [Concomitant]
     Active Substance: RIVAROXABAN
  4. AMLODIPINE [Concomitant]
     Active Substance: AMLODIPINE BESYLATE
  5. PREDNISONE 5 MG [Concomitant]
     Active Substance: PREDNISONE
  6. ZYRTEC [Concomitant]
     Active Substance: CETIRIZINE HYDROCHLORIDE
  7. CHOLECALCIFEROL 1000 UNITS [Concomitant]

REACTIONS (2)
  - Metastases to liver [None]
  - Disease progression [None]
